FAERS Safety Report 7018636-0 (Version None)
Quarter: 2010Q3

REPORT INFORMATION
  Report Type: 
  Country: None (occurrence: None)
  Receive Date: 20100928
  Receipt Date: 20100921
  Transmission Date: 20110219
  Serious: Yes (Hospitalization, Other)
  Sender: FDA-Public Use
  Company Number: US-MERCK-0704USA05721

PATIENT
  Age: 51 Year
  Sex: Female

DRUGS (3)
  1. FOSAMAX [Suspect]
     Indication: OSTEOPOROSIS
     Route: 048
     Dates: start: 20060106, end: 20060913
  2. PROZAC [Concomitant]
     Indication: DEPRESSION
     Route: 065
     Dates: start: 19880101
  3. HORMONES (UNSPECIFIED) [Concomitant]
     Route: 065
     Dates: start: 19810101

REACTIONS (33)
  - ADVERSE EVENT [None]
  - CELLULITIS [None]
  - CHRONIC OBSTRUCTIVE PULMONARY DISEASE [None]
  - CLOSTRIDIUM DIFFICILE COLITIS [None]
  - COUGH [None]
  - DECREASED APPETITE [None]
  - DENTAL CARIES [None]
  - DIARRHOEA [None]
  - DYSURIA [None]
  - FALL [None]
  - FOOT FRACTURE [None]
  - GASTROENTERITIS [None]
  - GASTROINTESTINAL HAEMORRHAGE [None]
  - GINGIVAL ABSCESS [None]
  - HEADACHE [None]
  - HOT FLUSH [None]
  - HYPOXIA [None]
  - INFECTION [None]
  - MULTIPLE SCLEROSIS RELAPSE [None]
  - NEUROPATHY PERIPHERAL [None]
  - OSTEONECROSIS OF JAW [None]
  - OVERDOSE [None]
  - PAIN IN JAW [None]
  - PALPITATIONS [None]
  - RASH [None]
  - RECTAL PROLAPSE [None]
  - RESPIRATORY FAILURE [None]
  - RIB FRACTURE [None]
  - SKIN DISORDER [None]
  - TREMOR [None]
  - VENOUS INSUFFICIENCY [None]
  - VISION BLURRED [None]
  - WEIGHT DECREASED [None]
